FAERS Safety Report 16355631 (Version 1)
Quarter: 2019Q2

REPORT INFORMATION
  Report Type: Spontaneous
  Country: US (occurrence: US)
  Receive Date: 20190525
  Receipt Date: 20190525
  Transmission Date: 20190711
  Serious: No
  Sender: FDA-Public Use
  Company Number: US-TEVA-2019-US-1044602

PATIENT
  Age: 27 Year
  Sex: Female

DRUGS (1)
  1. KELNOR 1/35 [Suspect]
     Active Substance: ETHINYL ESTRADIOL\ETHYNODIOL DIACETATE
     Indication: POLYCYSTIC OVARIES
     Dosage: FORM STRENGTH: ETHYNODIOL DIACETATE 1 MG AND ETHINYL ESTRADIOL 0.035 MG.
     Route: 065
     Dates: start: 2017

REACTIONS (7)
  - Amenorrhoea [Unknown]
  - Anxiety [Unknown]
  - Product substitution issue [Unknown]
  - Fatigue [Unknown]
  - Intentional product misuse [Unknown]
  - Insomnia [Unknown]
  - Product use in unapproved indication [Unknown]
